FAERS Safety Report 14939981 (Version 2)
Quarter: 2018Q2

REPORT INFORMATION
  Report Type: Spontaneous
  Country: IT (occurrence: IT)
  Receive Date: 20180525
  Receipt Date: 20180629
  Transmission Date: 20180711
  Serious: Yes (Other)
  Sender: FDA-Public Use
  Company Number: IT-ELI_LILLY_AND_COMPANY-IT201804001098

PATIENT
  Age: 64 Year
  Sex: Male

DRUGS (8)
  1. FORSTEO 250UG/ML [Suspect]
     Active Substance: TERIPARATIDE
     Indication: OSTEOPOROSIS
     Dosage: UNK UNK, UNKNOWN
     Route: 065
     Dates: start: 20180321
  2. AUGMENTAN                          /01000301/ [Concomitant]
     Indication: PRODUCT USED FOR UNKNOWN INDICATION
  3. FORSTEO 250UG/ML [Suspect]
     Active Substance: TERIPARATIDE
     Dosage: UNK UNK, UNKNOWN
     Route: 065
  4. BRUFEN                             /00109201/ [Concomitant]
     Active Substance: IBUPROFEN
     Indication: PAIN
  5. RIOPAN                             /00141701/ [Concomitant]
     Active Substance: MAGALDRATE
     Indication: ANTACID THERAPY
  6. TRIATEC                            /00885601/ [Suspect]
     Active Substance: RAMIPRIL
     Indication: BLOOD PRESSURE MANAGEMENT
     Dosage: 10 MG, DAILY
  7. TRIATEC                            /00885601/ [Suspect]
     Active Substance: RAMIPRIL
     Dosage: 5 UNK, UNK
  8. DIUREMID                           /01036501/ [Concomitant]
     Active Substance: TORSEMIDE
     Indication: BLOOD PRESSURE MANAGEMENT

REACTIONS (23)
  - Gastrointestinal disorder [Unknown]
  - Arthralgia [Unknown]
  - Injection site pruritus [Unknown]
  - Injection site bruising [Unknown]
  - Blood pressure decreased [Unknown]
  - Arthropathy [Recovered/Resolved]
  - Mobility decreased [Unknown]
  - Vertigo [Not Recovered/Not Resolved]
  - Blood pressure decreased [Recovered/Resolved]
  - Gait disturbance [Unknown]
  - Dyspepsia [Unknown]
  - Fatigue [Unknown]
  - Injection site swelling [Unknown]
  - Arthralgia [Recovered/Resolved]
  - Pain in extremity [Unknown]
  - Injection site erythema [Unknown]
  - Arthropathy [Unknown]
  - Blood pressure increased [Recovering/Resolving]
  - Blood pressure increased [Recovered/Resolved]
  - Vertigo [Unknown]
  - Pain in extremity [Recovered/Resolved]
  - Injection site swelling [Unknown]
  - Injection site pain [Unknown]

NARRATIVE: CASE EVENT DATE: 20180322
